FAERS Safety Report 16155524 (Version 4)
Quarter: 2019Q3

REPORT INFORMATION
  Report Type: Spontaneous
  Country: GB (occurrence: GB)
  Receive Date: 20190404
  Receipt Date: 20190905
  Transmission Date: 20191004
  Serious: Yes (Other)
  Sender: FDA-Public Use
  Company Number: GB-AUROBINDO-AUR-APL-2019-011624

PATIENT

DRUGS (8)
  1. GABAPENTIN. [Suspect]
     Active Substance: GABAPENTIN
     Indication: PRODUCT USED FOR UNKNOWN INDICATION
     Dosage: 400 MILLIGRAM, 0.33 DAY
     Route: 065
  2. SOLIFENACIN [Concomitant]
     Active Substance: SOLIFENACIN
     Indication: BLADDER DISORDER
     Dosage: UNK
     Route: 065
  3. MAVENCLAD [Suspect]
     Active Substance: CLADRIBINE
     Dosage: FIRST WEEK THERAPY: AS PER 70 TO 80 KG WEIGHT REGIME
     Route: 048
     Dates: start: 20180731
  4. AMITRIPTYLINE [Concomitant]
     Active Substance: AMITRIPTYLINE
     Indication: PRODUCT USED FOR UNKNOWN INDICATION
     Dosage: UNK
     Route: 065
  5. BACLOFEN. [Concomitant]
     Active Substance: BACLOFEN
     Indication: PRODUCT USED FOR UNKNOWN INDICATION
     Dosage: UNK
     Route: 065
  6. FLUOXETINE [Concomitant]
     Active Substance: FLUOXETINE HYDROCHLORIDE
     Indication: PRODUCT USED FOR UNKNOWN INDICATION
     Dosage: UNK
     Route: 065
  7. ZAPAIN [Concomitant]
     Active Substance: ACETAMINOPHEN\CODEINE PHOSPHATE
     Indication: PRODUCT USED FOR UNKNOWN INDICATION
     Dosage: UNK
     Route: 065
  8. MAVENCLAD [Suspect]
     Active Substance: CLADRIBINE
     Indication: MULTIPLE SCLEROSIS
     Dosage: 10 UNK
     Route: 048
     Dates: start: 201808

REACTIONS (19)
  - Vision blurred [Recovered/Resolved]
  - Furuncle [Unknown]
  - Feeling abnormal [Not Recovered/Not Resolved]
  - Headache [Recovered/Resolved]
  - Sensory disturbance [Not Recovered/Not Resolved]
  - Tooth fracture [Unknown]
  - Red blood cell count increased [Unknown]
  - Bruxism [Unknown]
  - Condition aggravated [Unknown]
  - Fatigue [Not Recovered/Not Resolved]
  - Pruritus [Unknown]
  - Dizziness [Not Recovered/Not Resolved]
  - Alopecia [Not Recovered/Not Resolved]
  - Weight increased [Not Recovered/Not Resolved]
  - Macrocytosis [Unknown]
  - Multiple sclerosis [Not Recovered/Not Resolved]
  - Dysgeusia [Not Recovered/Not Resolved]
  - Teeth brittle [Unknown]
  - Irritability [Recovering/Resolving]

NARRATIVE: CASE EVENT DATE: 20180731
